FAERS Safety Report 6957924-0 (Version None)
Quarter: 2010Q3

REPORT INFORMATION
  Report Type: 
  Country: None (occurrence: None)
  Receive Date: 20100830
  Receipt Date: 20100830
  Transmission Date: 20110219
  Serious: Yes (Other)
  Sender: FDA-Public Use
  Company Number: None

PATIENT
  Sex: Female

DRUGS (1)
  1. FLUOXETINE [Suspect]
     Indication: MAJOR DEPRESSION
     Dosage: SWITCH TO GENERIC FLUOXETINE 60 MG QD PO
     Route: 048
     Dates: start: 20010101

REACTIONS (3)
  - DRUG INEFFECTIVE [None]
  - GASTRITIS [None]
  - PRODUCT SUBSTITUTION ISSUE [None]
